FAERS Safety Report 7429909-1 (Version None)
Quarter: 2011Q2

REPORT INFORMATION
  Report Type: 
  Country: None (occurrence: None)
  Receive Date: 20110419
  Receipt Date: 20110419
  Transmission Date: 20111010
  Serious: Yes (Other)
  Sender: FDA-Public Use
  Company Number: None

PATIENT
  Age: 7 Year
  Sex: Female
  Weight: 24.0406 kg

DRUGS (2)
  1. FLOVENT [Concomitant]
  2. SINGULAIR [Suspect]
     Indication: ASTHMA
     Dosage: 5MG ONCE DAILY PO
     Route: 048
     Dates: start: 20100301, end: 20110415

REACTIONS (9)
  - SCHOOL REFUSAL [None]
  - ABDOMINAL PAIN UPPER [None]
  - ANXIETY [None]
  - PANIC REACTION [None]
  - CRYING [None]
  - MOOD ALTERED [None]
  - NERVOUSNESS [None]
  - FAECALOMA [None]
  - AGITATION [None]
